FAERS Safety Report 17997307 (Version 4)
Quarter: 2020Q3

REPORT INFORMATION
  Report Type: Report from Study
  Country: US (occurrence: US)
  Receive Date: 20200708
  Receipt Date: 20200806
  Transmission Date: 20201103
  Serious: Yes (Other)
  Sender: FDA-Public Use
  Company Number: NVSC2020US187424

PATIENT
  Age: 64 Year
  Sex: Female
  Weight: 103.27 kg

DRUGS (5)
  1. DETROL LA [Concomitant]
     Active Substance: TOLTERODINE TARTRATE
     Indication: PRODUCT USED FOR UNKNOWN INDICATION
     Dosage: 1 DF, QD, 24 HOURS 1 CAPSULE
     Route: 048
  2. MAYZENT [Suspect]
     Active Substance: SIPONIMOD
     Indication: MULTIPLE SCLEROSIS
     Dosage: 2 MG, QD VIA MOUTH CAPSULE
     Route: 048
     Dates: start: 20200621, end: 20200713
  3. ASPIRIN. [Concomitant]
     Active Substance: ASPIRIN
     Indication: PRODUCT USED FOR UNKNOWN INDICATION
     Dosage: 1 DF, QD
     Route: 048
  4. AMANTADINE. [Concomitant]
     Active Substance: AMANTADINE HYDROCHLORIDE
     Indication: PRODUCT USED FOR UNKNOWN INDICATION
     Dosage: 1 DF, QD
     Route: 048
  5. GABAPENTIN. [Concomitant]
     Active Substance: GABAPENTIN
     Dosage: 1 DF, AT BEDTIME
     Route: 048

REACTIONS (12)
  - Dizziness [Unknown]
  - Fatigue [Unknown]
  - Headache [Unknown]
  - Eye pain [Unknown]
  - Bradycardia [Recovered/Resolved with Sequelae]
  - Vision blurred [Unknown]
  - Syncope [Unknown]
  - Blood pressure decreased [Unknown]
  - Vitamin D deficiency [Unknown]
  - Anxiety [Unknown]
  - Urinary incontinence [Unknown]
  - Lethargy [Unknown]

NARRATIVE: CASE EVENT DATE: 2020
